FAERS Safety Report 8868900 (Version 2)
Quarter: 2012Q4

REPORT INFORMATION
  Report Type: Report from Study
  Country: CN (occurrence: CN)
  Receive Date: 20121027
  Receipt Date: 20121102
  Transmission Date: 20130627
  Serious: Yes (Other)
  Sender: FDA-Public Use
  Company Number: CN-US-EMD SERONO, INC.-7168017

PATIENT
  Age: 37 Year
  Sex: Female
  Weight: 54 kg

DRUGS (1)
  1. LUVERIS [Suspect]
     Indication: IN VITRO FERTILISATION
     Route: 042
     Dates: start: 20110406, end: 20110407

REACTIONS (1)
  - Abortion missed [Recovered/Resolved]
